FAERS Safety Report 17428397 (Version 1)
Quarter: 2020Q1

REPORT INFORMATION
  Report Type: Spontaneous
  Country: AU (occurrence: AU)
  Receive Date: 20200217
  Receipt Date: 20200217
  Transmission Date: 20200409
  Serious: Yes (Life-Threatening, Other)
  Sender: FDA-Public Use
  Company Number: AU-AMGEN-AUSSP2020024463

PATIENT

DRUGS (8)
  1. VINORELBINE [Suspect]
     Active Substance: VINORELBINE TARTRATE
     Indication: LYMPHOMA
     Dosage: 25 MILLIGRAM/SQ. METER (ON DAY 1 AND 8)
     Route: 042
  2. IFOSFAMIDE. [Suspect]
     Active Substance: IFOSFAMIDE
     Indication: LYMPHOMA
     Dosage: 3000 MILLIGRAM/SQ. METER
     Route: 042
  3. FILGRASTIM [Suspect]
     Active Substance: FILGRASTIM
     Indication: PRODUCT USED FOR UNKNOWN INDICATION
     Dosage: UNK
     Route: 065
  4. PEGFILGRASTIM [Suspect]
     Active Substance: PEGFILGRASTIM
     Indication: PRODUCT USED FOR UNKNOWN INDICATION
     Dosage: 6 MILLIGRAM
     Route: 058
  5. DEXAMETHASONE. [Suspect]
     Active Substance: DEXAMETHASONE
     Indication: LYMPHOMA
     Dosage: 16 MILLIGRAM/SQ. METER
     Route: 042
  6. GEMCITABINE. [Suspect]
     Active Substance: GEMCITABINE
     Indication: LYMPHOMA
     Dosage: 1000 MILLIGRAM/SQ. METER
     Route: 042
  7. MESNA. [Concomitant]
     Active Substance: MESNA
     Dosage: 1.2 GRAM PER SQUARE METRE, TO BE TAKEN AT 2 AND 6 HOURS AFTER COMPLETION OF IFOSFAMIDE
  8. MESNA. [Concomitant]
     Active Substance: MESNA
     Dosage: 600 MILLIGRAM/SQ. METER, IN 100 ML NORMAL SALINE OVER 15 MINUTES

REACTIONS (15)
  - Neutrophil count decreased [Unknown]
  - Febrile neutropenia [Unknown]
  - Diarrhoea [Unknown]
  - Haemoglobin decreased [Unknown]
  - Liver function test abnormal [Unknown]
  - Therapeutic product effect incomplete [Unknown]
  - Neutropenia [Unknown]
  - Thrombocytopenia [Unknown]
  - Nausea [Unknown]
  - Pulmonary toxicity [Unknown]
  - Vomiting [Unknown]
  - Infection [Unknown]
  - Alopecia [Unknown]
  - Disease progression [Unknown]
  - Platelet count decreased [Unknown]
